FAERS Safety Report 6033396-8 (Version None)
Quarter: 2009Q1

REPORT INFORMATION
  Report Type: 
  Country: None (occurrence: None)
  Receive Date: 20090109
  Receipt Date: 20090105
  Transmission Date: 20090719
  Serious: Yes (Hospitalization)
  Sender: FDA-Public Use
  Company Number: RU-ABBOTT-09P-251-0495818-00

PATIENT
  Age: 31 Year
  Sex: Male

DRUGS (2)
  1. DEPAKENE [Suspect]
     Indication: EPILEPSY
     Route: 048
  2. PHENOBARBITAL [Concomitant]
     Indication: DRUG USE FOR UNKNOWN INDICATION

REACTIONS (17)
  - ABDOMINAL PAIN [None]
  - ANOREXIA [None]
  - CARDIAC FAILURE ACUTE [None]
  - CIRCULATORY COLLAPSE [None]
  - HYPERSENSITIVITY [None]
  - HYPOTENSION [None]
  - INFECTION PARASITIC [None]
  - IRRITABILITY [None]
  - NAUSEA [None]
  - OPISTHORCHIASIS [None]
  - PARASITIC GASTROENTERITIS [None]
  - SOMNOLENCE [None]
  - STEVENS-JOHNSON SYNDROME [None]
  - TACHYCARDIA [None]
  - TAENIASIS [None]
  - VOMITING [None]
  - WEIGHT DECREASED [None]
